FAERS Safety Report 8122827-5 (Version None)
Quarter: 2012Q1

REPORT INFORMATION
  Report Type: 
  Country: None (occurrence: None)
  Receive Date: 20120208
  Receipt Date: 20120206
  Transmission Date: 20120608
  Serious: Yes (Death, Life-Threatening, Hospitalization, Other)
  Sender: FDA-Public Use
  Company Number: CH-PFIZER INC-2005080066

PATIENT
  Sex: Male

DRUGS (13)
  1. ASPARAGINASE [Suspect]
     Indication: ACUTE LYMPHOCYTIC LEUKAEMIA
     Route: 065
     Dates: start: 20050209, end: 20050307
  2. TORSEMIDE [Concomitant]
     Route: 065
     Dates: start: 20050201, end: 20050301
  3. BACTRIM [Concomitant]
     Route: 065
     Dates: start: 20050201, end: 20050301
  4. DAUNORUBICIN HCL [Suspect]
     Indication: ACUTE LYMPHOCYTIC LEUKAEMIA
     Route: 065
     Dates: start: 20050209, end: 20050307
  5. VFEND [Suspect]
     Indication: ASPERGILLOMA
     Route: 065
     Dates: start: 20050220, end: 20050308
  6. METHOTREXATE SODIUM [Suspect]
     Indication: ACUTE LYMPHOCYTIC LEUKAEMIA
     Route: 065
     Dates: start: 20050209, end: 20050307
  7. FUNGIZONE [Suspect]
     Indication: ASPERGILLOMA
     Route: 065
     Dates: start: 20050201, end: 20050201
  8. TAZOBACTAM [Suspect]
     Indication: ASPERGILLOMA
     Route: 065
     Dates: start: 20050212, end: 20050304
  9. PREDNISONE TAB [Concomitant]
     Route: 065
     Dates: start: 20050209
  10. VINCRISTINE SULFATE [Suspect]
     Indication: ACUTE LYMPHOCYTIC LEUKAEMIA
     Route: 065
     Dates: start: 20050209, end: 20050307
  11. CYCLOPHOSPHAMIDE [Suspect]
     Indication: ACUTE LYMPHOCYTIC LEUKAEMIA
     Route: 065
     Dates: start: 20050209, end: 20050307
  12. VALTREX [Suspect]
     Indication: ASPERGILLOMA
     Route: 065
     Dates: start: 20050220, end: 20050308
  13. NAVOBAN [Concomitant]
     Route: 065
     Dates: start: 20050201, end: 20050301

REACTIONS (5)
  - COMA HEPATIC [None]
  - CHOLESTASIS [None]
  - ALANINE AMINOTRANSFERASE INCREASED [None]
  - BLOOD BILIRUBIN INCREASED [None]
  - HEPATIC STEATOSIS [None]
